FAERS Safety Report 23714728 (Version 3)
Quarter: 2024Q4

REPORT INFORMATION
  Report Type: Spontaneous
  Country: CA (occurrence: CA)
  Receive Date: 20240406
  Receipt Date: 20241010
  Transmission Date: 20250114
  Serious: Yes (Other)
  Sender: CELLTRION
  Company Number: CA-CELLTRION INC.-2024CA008153

PATIENT

DRUGS (4)
  1. INFLIXIMAB [Suspect]
     Active Substance: INFLIXIMAB
     Indication: Rheumatoid arthritis
     Dosage: REMSIMA 120 MG/ML SC QWEEKLY FOR 8 WEEKS STARTING 29MAR2024 THEN Q2WEEKS
     Route: 058
     Dates: start: 20240126
  2. INFLIXIMAB [Suspect]
     Active Substance: INFLIXIMAB
     Dosage: 120 MG/ML, Q2WEEKS
     Route: 058
     Dates: start: 20240329
  3. INFLIXIMAB [Suspect]
     Active Substance: INFLIXIMAB
     Dosage: REMSIMA 120 MG/ML DIRECT AUTO-INJECTOR; 120MG ONCE WEEKLY
     Route: 058
  4. PREDNISONE [Concomitant]
     Active Substance: PREDNISONE
     Dosage: UNK

REACTIONS (3)
  - Rheumatoid arthritis [Unknown]
  - Drug ineffective [Unknown]
  - Intentional product use issue [Unknown]
